FAERS Safety Report 10224484 (Version 1)
Quarter: 2014Q2

REPORT INFORMATION
  Report Type: Spontaneous
  Country: DE (occurrence: DE)
  Receive Date: 20140609
  Receipt Date: 20140609
  Transmission Date: 20141212
  Serious: Yes (Hospitalization)
  Sender: FDA-Public Use
  Company Number: DE-PFIZER INC-2014153875

PATIENT
  Age: 85 Year
  Sex: 0

DRUGS (12)
  1. PREGABALIN [Suspect]
     Dosage: 75 MG, DAILY
     Route: 048
     Dates: start: 20130326, end: 20130327
  2. PREGABALIN [Suspect]
     Dosage: 150 MG, DAILY
     Route: 048
     Dates: start: 20130328, end: 20130401
  3. PROTHIPENDYL [Suspect]
     Dosage: 160 MG, DAILY
     Route: 048
  4. ASA [Concomitant]
     Dosage: 100 MG, DAILY
     Route: 048
  5. CLOPIDOGREL [Concomitant]
     Dosage: 75 MG, DAILY
     Route: 048
     Dates: end: 20130503
  6. SIMVASTATIN [Concomitant]
     Dosage: 80 MG, DAILY
     Route: 048
  7. PANTOPRAZOL [Concomitant]
     Dosage: 40 MG, DAILY
     Route: 048
  8. LERCANIDIPINE [Concomitant]
     Dosage: 10 MG, DAILY
     Route: 048
  9. BISOPROLOL [Concomitant]
     Dosage: 5 MG, DAILY
  10. ENALAPRIL [Concomitant]
     Dosage: 10 MG, DAILY
     Route: 048
  11. L-THYROXIN [Concomitant]
     Dosage: 125 UG, DAILY
     Route: 048
     Dates: end: 20130314
  12. L-THYROXIN [Concomitant]
     Dosage: 100 UG, DAILY
     Route: 048
     Dates: start: 20130315

REACTIONS (1)
  - Generalised oedema [Recovering/Resolving]
